FAERS Safety Report 5258738-2 (Version None)
Quarter: 2007Q1

REPORT INFORMATION
  Report Type: 
  Country: None (occurrence: None)
  Receive Date: 20070305
  Receipt Date: 20070219
  Transmission Date: 20070707
  Serious: Yes (Hospitalization)
  Sender: FDA-Public Use
  Company Number: E2090-00184-SPO-JP

PATIENT
  Age: 60 Year
  Sex: Male

DRUGS (11)
  1. EXCEGRAN (ZONISAMIDE) [Suspect]
     Indication: CONVULSION
     Dosage: 200 MG, 2 IN 1 D, ORAL
     Route: 048
     Dates: start: 20070105, end: 20070118
  2. EXCEGRAN (ZONISAMIDE) [Suspect]
     Indication: CONVULSION
     Dosage: 200 MG, 2 IN 1 D, ORAL
     Route: 048
     Dates: start: 20070101, end: 20070206
  3. WARFARIN SODIUM [Suspect]
     Indication: ATRIAL FIBRILLATION
     Dosage: 3.5 MG, 1 IN 1 D, ORAL
     Route: 048
     Dates: start: 20070104, end: 20070112
  4. WARFARIN SODIUM [Suspect]
     Indication: MITRAL VALVE STENOSIS
     Dosage: 3.5 MG, 1 IN 1 D, ORAL
     Route: 048
     Dates: start: 20070104, end: 20070112
  5. WARFARIN SODIUM [Suspect]
     Indication: ATRIAL FIBRILLATION
     Dosage: 3.5 MG, 1 IN 1 D, ORAL
     Route: 048
     Dates: start: 20070122, end: 20070206
  6. WARFARIN SODIUM [Suspect]
     Indication: MITRAL VALVE STENOSIS
     Dosage: 3.5 MG, 1 IN 1 D, ORAL
     Route: 048
     Dates: start: 20070122, end: 20070206
  7. WARFARIN SODIUM [Suspect]
     Indication: ATRIAL FIBRILLATION
     Dosage: 3.5 MG, 1 IN 1 D, ORAL
     Route: 048
     Dates: start: 19980101
  8. WARFARIN SODIUM [Suspect]
     Indication: MITRAL VALVE STENOSIS
     Dosage: 3.5 MG, 1 IN 1 D, ORAL
     Route: 048
     Dates: start: 19980101
  9. DIGOXIN [Concomitant]
  10. BLOPRESS (CANDEARTAN CILEXETIL) [Concomitant]
  11. AMOBAN (ZOPICLONE) [Concomitant]

REACTIONS (10)
  - BRAIN TUMOUR OPERATION [None]
  - CONVULSION [None]
  - DIZZINESS [None]
  - DRUG INTERACTION [None]
  - DUODENAL ULCER HAEMORRHAGE [None]
  - HAEMATOCRIT DECREASED [None]
  - HAEMOGLOBIN DECREASED [None]
  - INTERNATIONAL NORMALISED RATIO INCREASED [None]
  - PALLOR [None]
  - RED BLOOD CELL COUNT DECREASED [None]
